FAERS Safety Report 8227821-1 (Version None)
Quarter: 2012Q1

REPORT INFORMATION
  Report Type: 
  Country: None (occurrence: None)
  Receive Date: 20120322
  Receipt Date: 20120321
  Transmission Date: 20120608
  Serious: Yes (Hospitalization)
  Sender: FDA-Public Use
  Company Number: DE-ABBOTT-11P-062-0727913-00

PATIENT
  Sex: Female

DRUGS (2)
  1. HUMIRA [Suspect]
     Indication: RHEUMATOID ARTHRITIS
     Dosage: 40MG EOW
     Route: 058
     Dates: start: 20100101, end: 20110201
  2. HUMIRA [Suspect]
     Dates: start: 20110510

REACTIONS (1)
  - OSTEOARTHRITIS [None]
